FAERS Safety Report 15534092 (Version 1)
Quarter: 2018Q4

REPORT INFORMATION
  Report Type: Spontaneous
  Country: JP (occurrence: JP)
  Receive Date: 20181019
  Receipt Date: 20181019
  Transmission Date: 20190205
  Serious: Yes (Other)
  Sender: FDA-Public Use
  Company Number: JP-CELGENEUS-JPN-20180709746

PATIENT
  Age: 81 Year
  Sex: Female

DRUGS (3)
  1. ISTODAX [Suspect]
     Active Substance: ROMIDEPSIN
     Dosage: 14 MILLIGRAM/SQ. METER
     Route: 041
     Dates: start: 20180802, end: 2018
  2. ISTODAX [Suspect]
     Active Substance: ROMIDEPSIN
     Indication: PERIPHERAL T-CELL LYMPHOMA UNSPECIFIED
     Dosage: 14 MILLIGRAM/SQ. METER
     Route: 041
     Dates: start: 20180713, end: 20180713
  3. ISTODAX [Suspect]
     Active Substance: ROMIDEPSIN
     Dosage: 9 MILLIGRAM/SQ. METER
     Route: 041
     Dates: start: 20180907

REACTIONS (6)
  - Thrombocytopenia [Not Recovered/Not Resolved]
  - Pyrexia [Recovered/Resolved]
  - Thrombocytopenia [Recovering/Resolving]
  - Thrombocytopenia [Recovered/Resolved]
  - Cytomegalovirus infection [Unknown]
  - Peripheral T-cell lymphoma unspecified [Recovered/Resolved]

NARRATIVE: CASE EVENT DATE: 20180720
